FAERS Safety Report 6732978-5 (Version None)
Quarter: 2010Q2

REPORT INFORMATION
  Report Type: 
  Country: None (occurrence: None)
  Receive Date: 20100517
  Receipt Date: 20100429
  Transmission Date: 20101027
  Serious: Yes (Hospitalization, Other)
  Sender: FDA-Public Use
  Company Number: 2010ST000056

PATIENT
  Age: 81 Year
  Sex: Female

DRUGS (2)
  1. ZEGERID [Suspect]
     Indication: EXCORIATION
     Dosage: PO
     Route: 048
     Dates: start: 20100301
  2. ZEGERID [Suspect]
     Indication: OESOPHAGEAL DISORDER
     Dosage: PO
     Route: 048
     Dates: start: 20100301

REACTIONS (6)
  - ANAPHYLACTIC REACTION [None]
  - BLOOD PRESSURE INCREASED [None]
  - CONFUSIONAL STATE [None]
  - EPILEPSY [None]
  - TARDIVE DYSKINESIA [None]
  - VOMITING [None]
